FAERS Safety Report 9523670 (Version 5)
Quarter: 2014Q1

REPORT INFORMATION
  Report Type: Spontaneous
  Country: US (occurrence: US)
  Receive Date: 20130913
  Receipt Date: 20140203
  Transmission Date: 20141002
  Serious: Yes (Other)
  Sender: FDA-Public Use
  Company Number: US-GILEAD-2013-0083265

PATIENT
  Age: 58 Year
  Sex: Male
  Weight: 59 kg

DRUGS (10)
  1. LETAIRIS [Suspect]
     Indication: PULMONARY HYPERTENSION
     Dosage: 5 MG, UNK
     Dates: start: 20130729
  2. LETAIRIS [Suspect]
     Dosage: 5 MG, QD
     Dates: start: 20130730
  3. REVATIO [Concomitant]
  4. ALLOPURINOL [Concomitant]
  5. ATENOLOL [Concomitant]
  6. PROPRANOLOL [Concomitant]
  7. TOPROL [Concomitant]
  8. FUROSEMIDE [Concomitant]
  9. TORSEMIDE [Concomitant]
  10. COLCHICINE [Concomitant]
     Indication: GOUT

REACTIONS (3)
  - Cardiac failure congestive [Unknown]
  - Pulmonary oedema [Recovered/Resolved]
  - Fluid overload [Recovered/Resolved]
